FAERS Safety Report 5135453-7 (Version None)
Quarter: 2006Q4

REPORT INFORMATION
  Report Type: 
  Country: None (occurrence: None)
  Receive Date: 20061024
  Receipt Date: 20061024
  Transmission Date: 20070319
  Serious: Yes (Other)
  Sender: FDA-Public Use
  Company Number: None

PATIENT
  Age: 17 Year
  Sex: Female

DRUGS (3)
  1. SERTRALINE [Suspect]
     Indication: ANXIETY
     Dosage: 100 MG PO QD
     Route: 048
     Dates: start: 20060926, end: 20060926
  2. SERTRALINE [Suspect]
     Indication: DEPRESSION
     Dosage: 100 MG PO QD
     Route: 048
     Dates: start: 20060926, end: 20060926
  3. DEXEDRINE [Concomitant]

REACTIONS (5)
  - BURNING SENSATION [None]
  - DYSPNOEA [None]
  - INSOMNIA [None]
  - MOOD ALTERED [None]
  - THROAT TIGHTNESS [None]
